FAERS Safety Report 4285608-9 (Version None)
Quarter: 2004Q1

REPORT INFORMATION
  Report Type: 
  Country: None (occurrence: None)
  Receive Date: 20040205
  Receipt Date: 20040123
  Transmission Date: 20041129
  Serious: Yes (Hospitalization)
  Sender: FDA-Public Use
  Company Number: JP-BRISTOL-MYERS SQUIBB COMPANY-12485132

PATIENT
  Age: 48 Year
  Sex: Female

DRUGS (5)
  1. PACLITAXEL [Suspect]
     Indication: BREAST CANCER
     Route: 042
     Dates: start: 20040113
  2. VOLTAREN [Concomitant]
     Indication: PAIN
     Route: 054
     Dates: start: 20040116, end: 20040116
  3. DEXAMETHASONE [Concomitant]
     Indication: PREMEDICATION
     Route: 042
     Dates: start: 20040113, end: 20040113
  4. RANITIDINE [Concomitant]
     Indication: PREMEDICATION
     Route: 042
     Dates: start: 20040116, end: 20040116
  5. DIPHENHYDRAMINE HCL [Concomitant]
     Indication: PREMEDICATION
     Route: 048
     Dates: start: 20040116, end: 20040116

REACTIONS (6)
  - ANOREXIA [None]
  - HEADACHE [None]
  - METASTASIS [None]
  - NAUSEA [None]
  - VERTIGO [None]
  - VOMITING [None]
